FAERS Safety Report 24136772 (Version 2)
Quarter: 2024Q3

REPORT INFORMATION
  Report Type: Report from Study
  Country: IL (occurrence: IL)
  Receive Date: 20240725
  Receipt Date: 20240730
  Transmission Date: 20241017
  Serious: Yes (Other)
  Sender: TEVA
  Company Number: IL-TEVA-VS-3221475

PATIENT
  Age: 41 Year
  Sex: Female

DRUGS (4)
  1. AUSTEDO [Suspect]
     Active Substance: DEUTETRABENAZINE
     Indication: Tardive dyskinesia
     Dosage: 12*2
     Route: 065
     Dates: start: 20230908
  2. HALDOL [Suspect]
     Active Substance: HALOPERIDOL
     Route: 065
  3. REXULTI [Suspect]
     Active Substance: BREXPIPRAZOLE
     Route: 065
  4. BIPERIDEN LACTATE [Suspect]
     Active Substance: BIPERIDEN LACTATE
     Dosage: TWICE A DAY
     Route: 065

REACTIONS (2)
  - Gait disturbance [Unknown]
  - Drug ineffective [Unknown]
